FAERS Safety Report 4579024-X (Version None)
Quarter: 2005Q1

REPORT INFORMATION
  Report Type: 
  Country: None (occurrence: None)
  Receive Date: 20050211
  Receipt Date: 20050208
  Transmission Date: 20050727
  Serious: Yes (Hospitalization)
  Sender: FDA-Public Use
  Company Number: GB-MERCK-0502GBR00081

PATIENT
  Age: 67 Year
  Sex: Male

DRUGS (7)
  1. VIOXX [Suspect]
     Indication: SPINAL OSTEOARTHRITIS
     Route: 048
     Dates: start: 20040701, end: 20041020
  2. VIOXX [Suspect]
     Indication: ARTHRITIS
     Route: 048
     Dates: start: 20040701, end: 20041020
  3. KETOPROFEN [Suspect]
     Indication: SPINAL OSTEOARTHRITIS
     Route: 048
     Dates: start: 20041020
  4. KETOPROFEN [Suspect]
     Indication: ARTHRITIS
     Route: 048
     Dates: start: 20041020
  5. LISINOPRIL [Concomitant]
     Indication: HYPOTENSION
     Route: 048
     Dates: start: 20010701
  6. BENDROFLUMETHIAZIDE [Concomitant]
     Indication: HYPOTENSION
     Route: 048
     Dates: start: 20020901
  7. PRAVASTATIN SODIUM [Concomitant]
     Indication: BLOOD CHOLESTEROL INCREASED
     Route: 048
     Dates: start: 20020901

REACTIONS (4)
  - BARRETT'S OESOPHAGUS [None]
  - GASTRIC ULCER [None]
  - GASTRITIS EROSIVE [None]
  - HAEMATEMESIS [None]
